FAERS Safety Report 9984166 (Version 2)
Quarter: 2014Q1

REPORT INFORMATION
  Report Type: Spontaneous
  Country: US (occurrence: US)
  Receive Date: 20140307
  Receipt Date: 20140307
  Transmission Date: 20141002
  Serious: No
  Sender: FDA-Public Use
  Company Number: US-ABBVIE-13P-163-1178494-00

PATIENT
  Age: 43 Year
  Sex: Female

DRUGS (11)
  1. HUMIRA [Suspect]
     Indication: CROHN^S DISEASE
     Dosage: LOADING DOSE
     Dates: start: 20131209, end: 20131209
  2. HUMIRA [Suspect]
  3. SYNTHROID [Concomitant]
     Indication: PRODUCT USED FOR UNKNOWN INDICATION
  4. POTASSIUM CITRATE [Concomitant]
     Indication: PRODUCT USED FOR UNKNOWN INDICATION
  5. TRAZODONE [Concomitant]
     Indication: PRODUCT USED FOR UNKNOWN INDICATION
  6. MULTIVITAMIN [Concomitant]
     Indication: PRODUCT USED FOR UNKNOWN INDICATION
  7. VITAMIN B COMPLEX [Concomitant]
     Indication: PRODUCT USED FOR UNKNOWN INDICATION
  8. CALCIUM [Concomitant]
     Indication: PRODUCT USED FOR UNKNOWN INDICATION
  9. VITAMIN D [Concomitant]
     Indication: PRODUCT USED FOR UNKNOWN INDICATION
  10. IRON [Concomitant]
     Indication: PRODUCT USED FOR UNKNOWN INDICATION
  11. VITAMIN C [Concomitant]
     Indication: PRODUCT USED FOR UNKNOWN INDICATION

REACTIONS (2)
  - Injection site pain [Recovered/Resolved]
  - Injection site pain [Not Recovered/Not Resolved]
